FAERS Safety Report 20725549 (Version 2)
Quarter: 2022Q2

REPORT INFORMATION
  Report Type: Spontaneous
  Country: SE (occurrence: None)
  Receive Date: 20220419
  Receipt Date: 20220421
  Transmission Date: 20220720
  Serious: Yes (Hospitalization)
  Sender: FDA-Public Use
  Company Number: 2022A142201

PATIENT
  Age: 16 Year
  Sex: Male

DRUGS (4)
  1. LOSEC [Suspect]
     Active Substance: OMEPRAZOLE
     Dosage: ENTEROTABLETT
     Route: 048
  2. NIMOTOP [Suspect]
     Active Substance: NIMODIPINE
     Route: 065
  3. SERTRALINE HYDROCHLORIDE [Suspect]
     Active Substance: SERTRALINE HYDROCHLORIDE
     Route: 048
  4. TEGRETOL [Suspect]
     Active Substance: CARBAMAZEPINE
     Route: 065

REACTIONS (5)
  - Tremor [Unknown]
  - Pallor [Unknown]
  - Irritability [Unknown]
  - Cold sweat [Unknown]
  - Confusional state [Unknown]

NARRATIVE: CASE EVENT DATE: 20220101
